FAERS Safety Report 5147309-4 (Version None)
Quarter: 2006Q4

REPORT INFORMATION
  Report Type: 
  Country: None (occurrence: None)
  Receive Date: 20061109
  Receipt Date: 20061030
  Transmission Date: 20070319
  Serious: Yes (Hospitalization)
  Sender: FDA-Public Use
  Company Number: HR-MERCK-0610HUN00021

PATIENT
  Age: 66 Year
  Sex: Female

DRUGS (16)
  1. ZOCOR [Suspect]
     Indication: HYPERLIPIDAEMIA
     Route: 048
     Dates: start: 19980101, end: 20000101
  2. ZOCOR [Suspect]
     Route: 048
     Dates: start: 20000101, end: 20030101
  3. ZOCOR [Suspect]
     Route: 048
     Dates: start: 20060101, end: 20061003
  4. ZOCOR [Suspect]
     Route: 048
     Dates: start: 20030101, end: 20060101
  5. ZOCOR [Suspect]
     Indication: HYPERCHOLESTEROLAEMIA
     Route: 048
     Dates: start: 19980101, end: 20000101
  6. ZOCOR [Suspect]
     Route: 048
     Dates: start: 20000101, end: 20030101
  7. ZOCOR [Suspect]
     Route: 048
     Dates: start: 20060101, end: 20061003
  8. ZOCOR [Suspect]
     Route: 048
     Dates: start: 20030101, end: 20060101
  9. RAMIPRIL [Concomitant]
     Indication: HYPERTENSION
     Route: 048
     Dates: start: 20060923, end: 20061003
  10. ASPIRIN [Concomitant]
     Route: 048
     Dates: start: 20060923, end: 20061003
  11. BISOPROLOL FUMARATE [Concomitant]
     Route: 048
     Dates: start: 20060923, end: 20061003
  12. WARFARIN SODIUM [Concomitant]
     Route: 048
     Dates: start: 20060923, end: 20061002
  13. WARFARIN SODIUM [Concomitant]
     Route: 048
     Dates: start: 20061003
  14. PROPAFENONE HYDROCHLORIDE [Concomitant]
     Route: 048
     Dates: start: 20060923, end: 20061003
  15. PROPAFENONE HYDROCHLORIDE [Concomitant]
     Route: 048
     Dates: start: 20061014
  16. ATENOLOL [Concomitant]
     Route: 048
     Dates: start: 19920101, end: 20061001

REACTIONS (2)
  - HEPATITIS TOXIC [None]
  - LYMPHOCYTE PERCENTAGE DECREASED [None]
